FAERS Safety Report 12162489 (Version 2)
Quarter: 2016Q2

REPORT INFORMATION
  Report Type: Spontaneous
  Country: US (occurrence: US)
  Receive Date: 20160309
  Receipt Date: 20160511
  Transmission Date: 20160815
  Serious: No
  Sender: FDA-Public Use
  Company Number: US-PFIZER INC-2016088374

PATIENT
  Age: 59 Year
  Sex: Female

DRUGS (5)
  1. CELEBREX [Suspect]
     Active Substance: CELECOXIB
     Indication: JOINT SWELLING
  2. CELEBREX [Suspect]
     Active Substance: CELECOXIB
     Indication: MOVEMENT DISORDER
  3. CELEBREX [Suspect]
     Active Substance: CELECOXIB
     Indication: ARTHRALGIA
  4. CELEBREX [Suspect]
     Active Substance: CELECOXIB
     Indication: BONE PAIN
  5. CELEBREX [Suspect]
     Active Substance: CELECOXIB
     Indication: BONE SWELLING
     Dosage: UNK

REACTIONS (1)
  - Influenza like illness [Unknown]
